FAERS Safety Report 8230655-5 (Version None)
Quarter: 2012Q1

REPORT INFORMATION
  Report Type: 
  Country: None (occurrence: None)
  Receive Date: 20120323
  Receipt Date: 20120319
  Transmission Date: 20120608
  Serious: Yes (Death, Hospitalization)
  Sender: FDA-Public Use
  Company Number: US-ASTELLAS-2011US000740

PATIENT
  Sex: Female
  Weight: 54 kg

DRUGS (2)
  1. PROGRAF [Suspect]
     Indication: HEART TRANSPLANT
     Dosage: 1 MG 3 TABLETS TWICE DAILY
     Route: 048
  2. PROGRAF [Suspect]
     Dosage: 9 MG, UID/QD
     Route: 048
     Dates: start: 20040512

REACTIONS (3)
  - DRUG INEFFECTIVE [None]
  - HEART TRANSPLANT REJECTION [None]
  - COUGH [None]
